FAERS Safety Report 16037724 (Version 1)
Quarter: 2019Q1

REPORT INFORMATION
  Report Type: Spontaneous
  Country: US (occurrence: US)
  Receive Date: 20190305
  Receipt Date: 20190305
  Transmission Date: 20190418
  Serious: No
  Sender: FDA-Public Use
  Company Number: US-IMPAX LABORATORIES, LLC-2018-IPXL-04350

PATIENT
  Sex: Male
  Weight: 64 kg

DRUGS (2)
  1. RYTARY [Suspect]
     Active Substance: CARBIDOPA\LEVODOPA
     Dosage: 48.75MG/195MG DOSAGE FORM, DAILY
     Route: 065
     Dates: start: 20181210
  2. RYTARY [Suspect]
     Active Substance: CARBIDOPA\LEVODOPA
     Indication: PARKINSON^S DISEASE
     Dosage: 23.75MG/95MG DOSAGE FORM, DAILY
     Route: 065
     Dates: start: 20181210

REACTIONS (1)
  - Hallucination [Recovering/Resolving]
